FAERS Safety Report 16177793 (Version 1)
Quarter: 2019Q2

REPORT INFORMATION
  Report Type: Spontaneous
  Country: CZ (occurrence: CZ)
  Receive Date: 20190410
  Receipt Date: 20190410
  Transmission Date: 20190711
  Serious: Yes (Disabling, Other)
  Sender: FDA-Public Use
  Company Number: CZ-TEVA-2019-CZ-1033957

PATIENT
  Sex: Male

DRUGS (1)
  1. AZITHROMYCIN 500 [Suspect]
     Active Substance: AZITHROMYCIN
     Indication: LARYNGEAL INFLAMMATION
     Dosage: 500 MILLIGRAM DAILY; THE PACKAGE OF 3 TABLETS
     Route: 048

REACTIONS (1)
  - Deafness unilateral [Not Recovered/Not Resolved]

NARRATIVE: CASE EVENT DATE: 2019
